FAERS Safety Report 20608288 (Version 1)
Quarter: 2022Q1

REPORT INFORMATION
  Report Type: Spontaneous
  Country: TH (occurrence: TH)
  Receive Date: 20220317
  Receipt Date: 20220317
  Transmission Date: 20220423
  Serious: Yes (Other)
  Sender: FDA-Public Use
  Company Number: TH-ABBVIE-22K-155-4318618-00

PATIENT
  Age: 39 Year
  Sex: Female

DRUGS (1)
  1. VALPROIC ACID [Suspect]
     Active Substance: VALPROIC ACID
     Indication: Seizure
     Route: 065

REACTIONS (8)
  - Hereditary ataxia [Unknown]
  - Dysmetria [Unknown]
  - Head titubation [Unknown]
  - Dysarthria [Unknown]
  - Gait disturbance [Unknown]
  - Congenital oculomotor apraxia [Unknown]
  - Chorea [Unknown]
  - Saccadic eye movement [Unknown]
